FAERS Safety Report 13541847 (Version 1)
Quarter: 2017Q2

REPORT INFORMATION
  Report Type: Spontaneous
  Country: US (occurrence: US)
  Receive Date: 20170512
  Receipt Date: 20170512
  Transmission Date: 20170830
  Serious: Yes (Other)
  Sender: FDA-Public Use
  Company Number: US-ELI_LILLY_AND_COMPANY-US201705000660

PATIENT
  Sex: Female

DRUGS (5)
  1. HUMULIN R [Suspect]
     Active Substance: INSULIN HUMAN
     Indication: TYPE 2 DIABETES MELLITUS
     Dosage: 70 U, AT BREAKFAST AND LUNCH
     Route: 065
     Dates: start: 2012, end: 201702
  2. HUMULIN R U-500 [Suspect]
     Active Substance: INSULIN HUMAN
     Indication: TYPE 2 DIABETES MELLITUS
     Dosage: UNK, UNKNOWN
     Route: 058
     Dates: start: 201702
  3. HUMULIN R U-500 [Suspect]
     Active Substance: INSULIN HUMAN
     Dosage: BASED ON HER BLOOD SUGAR READINGS
     Route: 058
     Dates: start: 20170501, end: 20170504
  4. HUMULIN R [Suspect]
     Active Substance: INSULIN HUMAN
     Dosage: 140 U, DAILY, AT DINNER
     Route: 065
     Dates: start: 2012, end: 201702
  5. HUMULIN R U-500 [Suspect]
     Active Substance: INSULIN HUMAN
     Dosage: 180 U, AT BREAKFAST AND DINNER
     Route: 058
     Dates: start: 20170504

REACTIONS (9)
  - Blood glucose decreased [Recovered/Resolved]
  - Blood glucose increased [Recovering/Resolving]
  - Weight increased [Not Recovered/Not Resolved]
  - Visual impairment [Unknown]
  - Glycosylated haemoglobin increased [Not Recovered/Not Resolved]
  - Vitreous floaters [Not Recovered/Not Resolved]
  - Hyperhidrosis [Unknown]
  - Eye haemorrhage [Not Recovered/Not Resolved]
  - Insulin resistance [Not Recovered/Not Resolved]

NARRATIVE: CASE EVENT DATE: 20170501
